FAERS Safety Report 15121775 (Version 1)
Quarter: 2018Q3

REPORT INFORMATION
  Report Type: Spontaneous
  Country: US (occurrence: US)
  Receive Date: 20180613
  Receipt Date: 20180613
  Transmission Date: 20181010
  Serious: Yes (Hospitalization)
  Sender: FDA-Public Use
  Company Number: None

PATIENT
  Age: 36 Year
  Sex: Male
  Weight: 135.7 kg

DRUGS (1)
  1. GLYXAMBI [Suspect]
     Active Substance: EMPAGLIFLOZIN\LINAGLIPTIN
     Indication: TYPE 2 DIABETES MELLITUS
     Route: 048

REACTIONS (7)
  - Metabolic acidosis [None]
  - Abdominal pain [None]
  - Nausea [None]
  - Vomiting [None]
  - Pain [None]
  - Hypokalaemia [None]
  - Diabetic ketoacidosis [None]

NARRATIVE: CASE EVENT DATE: 20161219
